FAERS Safety Report 19243208 (Version 1)
Quarter: 2021Q2

REPORT INFORMATION
  Report Type: Spontaneous
  Country: NL (occurrence: NL)
  Receive Date: 20210511
  Receipt Date: 20210511
  Transmission Date: 20210717
  Serious: Yes (Other)
  Sender: FDA-Public Use
  Company Number: NL-TEVA-2021-NL-1909131

PATIENT
  Age: 34 Year
  Sex: Female
  Weight: 65 kg

DRUGS (3)
  1. METHYLFENIDAAT TABLET MGA 54MG / CONCERTA TABLET MVA 54MG [Concomitant]
     Dosage: 54 MG (MILLIGRAM); THERAPY START DATE; THERAPY END DATE : ASKED BUT UNKNOWN
  2. METHYLFENIDAAT TABLET 10MG / RITALIN TABLET 10MG [Concomitant]
     Dosage: 30 MILLIGRAM DAILY; THERAPY START DATE; THERAPY END DATE : ASKED BUT UNKNOWN
  3. QUETIAPINE TABLET 12,5MG / BRAND NAME NOT SPECIFIED [Suspect]
     Active Substance: QUETIAPINE
     Indication: INSOMNIA
     Dosage: 1 TO 2 PIECES PER DAY AS NEEDED; 1 DF
     Dates: start: 20210204, end: 20210308

REACTIONS (6)
  - Delusion [Recovering/Resolving]
  - Insomnia [Recovering/Resolving]
  - Disturbance in attention [Recovering/Resolving]
  - Confusional state [Recovering/Resolving]
  - Psychotic disorder [Recovering/Resolving]
  - Memory impairment [Recovering/Resolving]

NARRATIVE: CASE EVENT DATE: 20210205
